FAERS Safety Report 13991587 (Version 1)
Quarter: 2017Q3

REPORT INFORMATION
  Report Type: Spontaneous
  Country: US (occurrence: US)
  Receive Date: 20170920
  Receipt Date: 20170920
  Transmission Date: 20171128
  Serious: Yes (Hospitalization, Other)
  Sender: FDA-Public Use
  Company Number: US-ASTELLAS-2017US036963

PATIENT
  Age: 76 Year
  Sex: Female

DRUGS (3)
  1. MYCOPHENOLATE MOFETIL. [Concomitant]
     Active Substance: MYCOPHENOLATE MOFETIL
     Indication: RENAL TRANSPLANT
     Dosage: UNK UNK, UNKNOWN FREQ.
     Route: 065
  2. TACROLIMUS. [Suspect]
     Active Substance: TACROLIMUS
     Indication: RENAL TRANSPLANT
     Dosage: UNK, UNKNOWN FREQ. (TARGET TROUGH LEVELS 8-12 NG/ML DURING THE FIRST 3 MONTHS)
     Route: 065
  3. THYMOGLOBULIN [Concomitant]
     Active Substance: LAPINE T-LYMPHOCYTE IMMUNE GLOBULIN
     Indication: RENAL TRANSPLANT
     Dosage: UNK, UNKNOWN FREQ.
     Route: 065

REACTIONS (8)
  - Renal ischaemia [Unknown]
  - Vascular resistance systemic increased [Unknown]
  - Thrombosis [Unknown]
  - Delayed graft function [Unknown]
  - Nephrectomy [Unknown]
  - Hypertension [Unknown]
  - Complications of transplanted kidney [Unknown]
  - Glomerular filtration rate increased [Unknown]
